FAERS Safety Report 8242969-3 (Version None)
Quarter: 2012Q1

REPORT INFORMATION
  Report Type: 
  Country: None (occurrence: None)
  Receive Date: 20120329
  Receipt Date: 20120322
  Transmission Date: 20120608
  Serious: Yes (Other)
  Sender: FDA-Public Use
  Company Number: US-PFIZER INC-2012075403

PATIENT
  Sex: Female
  Weight: 95.238 kg

DRUGS (2)
  1. CELEBREX [Suspect]
     Indication: OSTEOARTHRITIS
     Dosage: 100 MG, 2X/DAY
     Route: 048
  2. COUMADIN [Concomitant]
     Dosage: UNK

REACTIONS (5)
  - PAIN [None]
  - NASOPHARYNGITIS [None]
  - SPINAL COLUMN STENOSIS [None]
  - ABDOMINAL HERNIA [None]
  - BLADDER CANCER [None]
